FAERS Safety Report 9325232 (Version 3)
Quarter: 2013Q3

REPORT INFORMATION
  Report Type: Spontaneous
  Country: US (occurrence: US)
  Receive Date: 20130604
  Receipt Date: 20130703
  Transmission Date: 20140515
  Serious: Yes (Death, Hospitalization, Other)
  Sender: FDA-Public Use
  Company Number: US-AMGEN-USASP2013038537

PATIENT
  Age: 64 Year
  Sex: Female

DRUGS (12)
  1. ENBREL [Suspect]
     Indication: PRODUCT USED FOR UNKNOWN INDICATION
     Dosage: UNK
     Route: 065
  2. ANTIINFLAMMATORY/ANTIRHEUMATIC PRODUCTS [Suspect]
     Indication: RHEUMATOID ARTHRITIS
     Dosage: UNK UNK, BID
     Route: 048
     Dates: start: 20130131, end: 20130411
  3. ORENCIA [Suspect]
     Dosage: 12.5 MG, QWK
  4. LISINOPRIL [Concomitant]
     Dosage: 20/12.5 MG QD
  5. MOTRIN [Concomitant]
     Dosage: 800 MG, TID
  6. ARAVA [Concomitant]
     Dosage: 200 MG, QD
  7. ZOLOFT [Concomitant]
     Dosage: 500 MG, BID
  8. VIT D [Concomitant]
     Dosage: 50000 UNK, QWK
  9. NEXIUM                             /01479302/ [Concomitant]
     Dosage: 40 MG, QD
  10. NUVIGIL [Concomitant]
     Dosage: 150 QD/ PNR
  11. ACTEMRA [Concomitant]
     Dosage: 4 MG, UNK
  12. HYDROCODONE [Concomitant]
     Dosage: UNK UNK, TID

REACTIONS (72)
  - Status epilepticus [Unknown]
  - Sepsis [Fatal]
  - Pulmonary valve incompetence [Unknown]
  - Pain [Unknown]
  - Cerebral infarction [Unknown]
  - Cerebral thrombosis [Unknown]
  - Altered state of consciousness [Unknown]
  - Drug dependence [Unknown]
  - Mental status changes [Unknown]
  - Cardiac aneurysm [Unknown]
  - Cerebrovascular accident [Unknown]
  - Rheumatoid nodule [Unknown]
  - Asthenia [Unknown]
  - Acute respiratory failure [Unknown]
  - Delirium [Unknown]
  - Convulsion [Unknown]
  - Septic shock [Unknown]
  - Staphylococcal bacteraemia [Unknown]
  - Tachycardia [Unknown]
  - Arthritis bacterial [Unknown]
  - Gastrointestinal haemorrhage [Unknown]
  - Mitral valve stenosis [Unknown]
  - Chest pain [Unknown]
  - Tricuspid valve incompetence [Unknown]
  - Encephalopathy [Unknown]
  - Ventricular hypertrophy [Unknown]
  - Septic embolus [Unknown]
  - Convulsion [Unknown]
  - Atrial septal defect [Unknown]
  - Hyponatraemia [Unknown]
  - Endocarditis bacterial [Unknown]
  - Generalised oedema [Unknown]
  - Hypovolaemia [Unknown]
  - Osteomyelitis [Unknown]
  - Joint swelling [Unknown]
  - Purulent discharge [Unknown]
  - Skin ulcer [Unknown]
  - Gout [Unknown]
  - Arthritis [Unknown]
  - Gait disturbance [Unknown]
  - Decubitus ulcer [Unknown]
  - Local swelling [Unknown]
  - Erythema [Unknown]
  - Haemoglobin decreased [Unknown]
  - Diarrhoea [Unknown]
  - Gastrointestinal sounds abnormal [Unknown]
  - Gastritis [Unknown]
  - Arthropathy [Unknown]
  - Oedema peripheral [Unknown]
  - Wound [Unknown]
  - Hypotonia [Unknown]
  - Mastoid effusion [Unknown]
  - Blood pressure systolic decreased [Unknown]
  - Gliosis [Unknown]
  - Rash [Unknown]
  - Papule [Unknown]
  - Scab [Unknown]
  - Excoriation [Unknown]
  - Prurigo [Unknown]
  - Somnolence [Unknown]
  - Tenosynovitis [Unknown]
  - Arteriosclerosis [Unknown]
  - Arthralgia [Unknown]
  - Soft tissue inflammation [Unknown]
  - Pleural effusion [Unknown]
  - Rib fracture [Unknown]
  - Osteopenia [Unknown]
  - Vomiting [Unknown]
  - Drug ineffective [Unknown]
  - Skin mass [Unknown]
  - Abscess limb [Unknown]
  - Drug hypersensitivity [Unknown]
